FAERS Safety Report 8120381-5 (Version None)
Quarter: 2012Q1

REPORT INFORMATION
  Report Type: 
  Country: None (occurrence: None)
  Receive Date: 20120207
  Receipt Date: 20120201
  Transmission Date: 20120608
  Serious: Yes (Hospitalization)
  Sender: FDA-Public Use
  Company Number: GB-GLAXOSMITHKLINE-B0778698A

PATIENT

DRUGS (7)
  1. CLOZAPINE [Suspect]
     Route: 048
     Dates: start: 20120123
  2. ACETAMINOPHEN [Concomitant]
     Route: 048
  3. LORAZEPAM [Concomitant]
     Route: 048
  4. CLOZAPINE [Suspect]
     Route: 048
     Dates: start: 20110204, end: 20111213
  5. PAROXETINE [Suspect]
  6. FOLIC ACID [Concomitant]
     Route: 048
  7. VALPROATE SODIUM [Concomitant]
     Route: 048

REACTIONS (6)
  - DRUG INTERACTION [None]
  - DRUG LEVEL INCREASED [None]
  - DYSTONIA [None]
  - NEUTROPENIA [None]
  - TOXICITY TO VARIOUS AGENTS [None]
  - LYMPHOCYTE COUNT DECREASED [None]
